FAERS Safety Report 8008278-2 (Version None)
Quarter: 2011Q4

REPORT INFORMATION
  Report Type: 
  Country: None (occurrence: None)
  Receive Date: 20111227
  Receipt Date: 20111220
  Transmission Date: 20120403
  Serious: Yes (Disabling)
  Sender: FDA-Public Use
  Company Number: GB-ROCHE-1023384

PATIENT
  Sex: Female
  Weight: 65 kg

DRUGS (4)
  1. AVASTIN [Suspect]
     Indication: BREAST CANCER METASTATIC
     Dates: start: 20101118, end: 20110906
  2. LETROZOLE [Concomitant]
     Indication: BREAST CANCER METASTATIC
     Route: 048
     Dates: start: 20110405
  3. ABRAXANE [Concomitant]
     Indication: BREAST CANCER METASTATIC
     Dates: start: 20101118, end: 20110428
  4. GOSERELIN [Concomitant]
     Indication: BREAST CANCER METASTATIC
     Route: 058

REACTIONS (2)
  - IMPAIRED HEALING [None]
  - ULCER [None]
